FAERS Safety Report 7373053-9 (Version None)
Quarter: 2011Q1

REPORT INFORMATION
  Report Type: 
  Country: None (occurrence: None)
  Receive Date: 20110314
  Receipt Date: 20110302
  Transmission Date: 20110831
  Serious: Yes (Other)
  Sender: FDA-Public Use
  Company Number: 027956

PATIENT
  Sex: Female

DRUGS (1)
  1. CIMZIA [Suspect]
     Indication: CROHN'S DISEASE
     Dosage: 400 MG 1X4 WEEKS, SUBCUTANEOUS
     Route: 058
     Dates: start: 20110217

REACTIONS (4)
  - UVEITIS [None]
  - DRUG HYPERSENSITIVITY [None]
  - EYE SWELLING [None]
  - OCULAR HYPERAEMIA [None]
